FAERS Safety Report 6264125-0 (Version None)
Quarter: 2009Q3

REPORT INFORMATION
  Report Type: 
  Country: None (occurrence: None)
  Receive Date: 20090710
  Receipt Date: 20090629
  Transmission Date: 20100115
  Serious: Yes (Hospitalization)
  Sender: FDA-Public Use
  Company Number: KR-PFIZER INC-2009229915

PATIENT
  Age: 75 Year

DRUGS (5)
  1. SUNITINIB MALATE [Suspect]
     Indication: HEPATIC NEOPLASM MALIGNANT
     Dosage: 37.5 MG, 1X/DAY
     Route: 048
     Dates: start: 20090317
  2. LASIX [Concomitant]
     Indication: ABDOMINAL DISTENSION
     Dosage: 20 MG, 1X/DAY
     Dates: start: 20090507
  3. ALDACTONE [Concomitant]
     Indication: ABDOMINAL DISTENSION
     Dosage: 100 MG, 1X/DAY
     Dates: start: 20090507
  4. METOCLOPRAMIDE HYDROCHLORIDE [Concomitant]
     Indication: VOMITING
     Dosage: 15 MG, 3X/DAY
     Dates: start: 20090513
  5. MEGESTROL ACETATE [Concomitant]
     Indication: DECREASED APPETITE
     Dosage: 20 ML, 1X/DAY
     Dates: start: 20090615

REACTIONS (2)
  - DEHYDRATION [None]
  - HYPOPHAGIA [None]
